FAERS Safety Report 8342013-3 (Version None)
Quarter: 2012Q2

REPORT INFORMATION
  Report Type: 
  Country: None (occurrence: None)
  Receive Date: 20120507
  Receipt Date: 20120501
  Transmission Date: 20120825
  Serious: No
  Sender: FDA-Public Use
  Company Number: US-B.I. PHARMACEUTICALS,INC./RIDGEFIELD-2012-BP-09894BP

PATIENT
  Age: 66 Year
  Sex: Female

DRUGS (5)
  1. PANTROPRAZOLE [Concomitant]
     Indication: GASTROOESOPHAGEAL REFLUX DISEASE
  2. PRAM [Concomitant]
  3. SPIRIVA [Suspect]
     Dosage: 18 MCG
     Route: 055
     Dates: start: 20120301
  4. METHOTREXATE [Concomitant]
     Indication: ARTHRITIS
  5. VALACYCLOVIR [Concomitant]
     Indication: HERPES SIMPLEX

REACTIONS (2)
  - PAROSMIA [None]
  - DYSGEUSIA [None]
